FAERS Safety Report 7640012-8 (Version None)
Quarter: 2011Q3

REPORT INFORMATION
  Report Type: 
  Country: None (occurrence: None)
  Receive Date: 20110727
  Receipt Date: 20110722
  Transmission Date: 20111222
  Serious: Yes (Other)
  Sender: FDA-Public Use
  Company Number: JP-MERCK-1102USA01261

PATIENT
  Age: 90 Year
  Sex: Male
  Weight: 61 kg

DRUGS (6)
  1. ELEMENMIC [Concomitant]
     Dosage: DOSAGE IS UNCERTAIN DURING A DAY
     Route: 041
  2. HUMULIN R [Concomitant]
     Dosage: DOSAGE IS UNCERTAIN DURING A DAY
     Route: 051
  3. FULCALIQ [Concomitant]
     Dosage: DOSAGE IS UNCERTAIN DURING A DAY
     Route: 041
  4. JANUVIA [Suspect]
     Indication: DIABETES MELLITUS
     Route: 048
     Dates: start: 20110201, end: 20110201
  5. METFORMIN HCL [Suspect]
     Route: 048
     Dates: start: 20110201, end: 20110201
  6. LANTUS [Concomitant]
     Dosage: DOSAGE IS UNCERTAIN DURING A DAY
     Route: 058

REACTIONS (2)
  - HEPATITIS [None]
  - VOMITING [None]
